FAERS Safety Report 8772192 (Version 2)
Quarter: 2012Q4

REPORT INFORMATION
  Report Type: 
  Country: JP (occurrence: JP)
  Receive Date: 20120904
  Receipt Date: 20120912
  Transmission Date: 20130627
  Serious: Yes (Other)
  Sender: FDA-Public Use
  Company Number: JP-PFIZER INC-2012213054

PATIENT
  Age: 76 Year
  Sex: Female

DRUGS (1)
  1. LYRICA [Suspect]
     Indication: HERNIA
     Dosage: 75 mg once daily at bedtime
     Route: 048

REACTIONS (3)
  - Hernia [Recovered/Resolved]
  - Diplopia [Recovered/Resolved]
  - Pyrexia [Recovered/Resolved]
